FAERS Safety Report 20110767 (Version 1)
Quarter: 2021Q4

REPORT INFORMATION
  Report Type: Spontaneous
  Country: CA (occurrence: CA)
  Receive Date: 20211124
  Receipt Date: 20211124
  Transmission Date: 20220303
  Serious: Yes (Other)
  Sender: FDA-Public Use
  Company Number: CA-BAXTER-2021BAX037363

PATIENT
  Age: 76 Year
  Sex: Female

DRUGS (9)
  1. DOXORUBICIN HYDROCHLORIDE [Suspect]
     Active Substance: DOXORUBICIN HYDROCHLORIDE
     Indication: Serous cystadenocarcinoma ovary
     Route: 065
  2. CARBOPLATIN [Suspect]
     Active Substance: CARBOPLATIN
     Indication: Serous cystadenocarcinoma ovary
     Route: 042
  3. FULVESTRANT [Suspect]
     Active Substance: FULVESTRANT
     Indication: Serous cystadenocarcinoma ovary
     Dosage: 500 MG (250 MG,2 IN 1 D)
     Route: 065
  4. GEMCITABINE [Suspect]
     Active Substance: GEMCITABINE
     Indication: Serous cystadenocarcinoma ovary
     Route: 065
  5. IBRANCE [Suspect]
     Active Substance: PALBOCICLIB
     Indication: Serous cystadenocarcinoma ovary
     Route: 048
  6. LETROZOLE [Suspect]
     Active Substance: LETROZOLE
     Indication: Serous cystadenocarcinoma ovary
     Route: 065
  7. MEGACE [Suspect]
     Active Substance: MEGESTROL ACETATE
     Indication: Serous cystadenocarcinoma ovary
     Route: 065
  8. METFORMIN [Suspect]
     Active Substance: METFORMIN HYDROCHLORIDE
     Indication: Serous cystadenocarcinoma ovary
     Route: 065
  9. TAMOXIFEN [Suspect]
     Active Substance: TAMOXIFEN
     Indication: Serous cystadenocarcinoma ovary
     Route: 065

REACTIONS (2)
  - Malignant neoplasm progression [Unknown]
  - Serous cystadenocarcinoma ovary [Unknown]
